FAERS Safety Report 12947086 (Version 2)
Quarter: 2016Q4

REPORT INFORMATION
  Report Type: Report from Study
  Country: BR (occurrence: BR)
  Receive Date: 20161116
  Receipt Date: 20161129
  Transmission Date: 20170207
  Serious: Yes (Other)
  Sender: FDA-Public Use
  Company Number: PHHY2016BR156365

PATIENT
  Sex: Male
  Weight: 74 kg

DRUGS (4)
  1. ONBREZ BREEZHALER [Suspect]
     Active Substance: INDACATEROL
     Indication: LUNG DISORDER
     Dosage: 300 UG, QD
     Route: 055
     Dates: start: 201303, end: 2014
  2. ENALAPRIL [Concomitant]
     Active Substance: ENALAPRIL
     Indication: HYPERTENSION
     Dosage: 2 DF, QD
     Route: 048
     Dates: start: 2012
  3. ONBREZ BREEZHALER [Suspect]
     Active Substance: INDACATEROL
     Dosage: 300 UG, QD
     Route: 055
  4. ONBREZ BREEZHALER [Suspect]
     Active Substance: INDACATEROL
     Indication: EMPHYSEMA
     Dosage: 300 UG, QD
     Route: 055
     Dates: start: 20120911

REACTIONS (5)
  - Product use issue [Unknown]
  - Lung disorder [Recovered/Resolved]
  - Dyspnoea [Recovering/Resolving]
  - Fatigue [Recovering/Resolving]
  - Drug ineffective [Unknown]
